FAERS Safety Report 5212582-0 (Version None)
Quarter: 2007Q1

REPORT INFORMATION
  Report Type: 
  Country: None (occurrence: None)
  Receive Date: 20070118
  Receipt Date: 20060911
  Transmission Date: 20070707
  Serious: Yes (Other)
  Sender: FDA-Public Use
  Company Number: US-PFIZER INC-2007001013

PATIENT
  Sex: Female
  Weight: 93.9 kg

DRUGS (2)
  1. BEXTRA [Suspect]
     Indication: ARTHRITIS
     Route: 048
     Dates: start: 20041001, end: 20041101
  2. PLAQUENIL [Concomitant]

REACTIONS (1)
  - STEVENS-JOHNSON SYNDROME [None]
